FAERS Safety Report 5909887-4 (Version None)
Quarter: 2008Q4

REPORT INFORMATION
  Report Type: 
  Country: None (occurrence: None)
  Receive Date: 20081003
  Receipt Date: 20081003
  Transmission Date: 20090506
  Serious: No
  Sender: FDA-Public Use
  Company Number: None

PATIENT
  Age: 45 Year
  Sex: Female
  Weight: 58.9676 kg

DRUGS (1)
  1. TREXIMET [Suspect]
     Indication: MIGRAINE
     Dosage: 1 PILL ONCE
     Dates: start: 20080926, end: 20080926

REACTIONS (4)
  - ARTHRALGIA [None]
  - HYPERAESTHESIA [None]
  - MIDDLE INSOMNIA [None]
  - MYALGIA [None]
